FAERS Safety Report 19394744 (Version 1)
Quarter: 2021Q2

REPORT INFORMATION
  Report Type: Spontaneous
  Country: CA (occurrence: CA)
  Receive Date: 20210609
  Receipt Date: 20210609
  Transmission Date: 20210717
  Serious: Yes (Other)
  Sender: FDA-Public Use
  Company Number: CA-FRESENIUS KABI-FK202105712

PATIENT
  Age: 72 Year
  Sex: Female
  Weight: 48 kg

DRUGS (2)
  1. ATEZOLIZUMAB. [Concomitant]
     Active Substance: ATEZOLIZUMAB
     Indication: PRODUCT USED FOR UNKNOWN INDICATION
     Route: 065
  2. TOPOTECAN [Suspect]
     Active Substance: TOPOTECAN HYDROCHLORIDE
     Indication: LUNG NEOPLASM
     Dosage: TOPOTECAN INJECTION CONCENTRATE (DILUTE BEFORE USE). 1/3/4 ML SINGLE USE VIALS
     Route: 042

REACTIONS (3)
  - Cystitis escherichia [Unknown]
  - Febrile neutropenia [Unknown]
  - Colitis [Unknown]
